FAERS Safety Report 24537531 (Version 2)
Quarter: 2024Q4

REPORT INFORMATION
  Report Type: Spontaneous
  Country: US (occurrence: None)
  Receive Date: 20241023
  Receipt Date: 20241030
  Transmission Date: 20250114
  Serious: No
  Sender: UMEDICA LABS
  Company Number: US-Umedica-000564

PATIENT
  Age: 69 Year
  Sex: Female

DRUGS (2)
  1. ATORVASTATIN [Suspect]
     Active Substance: ATORVASTATIN
     Indication: Cerebrovascular accident
     Route: 048
     Dates: start: 202410, end: 202410
  2. ATORVASTATIN [Suspect]
     Active Substance: ATORVASTATIN
     Indication: Prophylaxis
     Route: 048
     Dates: start: 2024, end: 2024

REACTIONS (2)
  - Product odour abnormal [Unknown]
  - Headache [Unknown]

NARRATIVE: CASE EVENT DATE: 20241001
